FAERS Safety Report 5387726-0 (Version None)
Quarter: 2007Q3

REPORT INFORMATION
  Report Type: 
  Country: None (occurrence: None)
  Receive Date: 20070716
  Receipt Date: 20070712
  Transmission Date: 20080115
  Serious: Yes (Hospitalization)
  Sender: FDA-Public Use
  Company Number: A0664048A

PATIENT
  Age: 38 Year
  Sex: Female

DRUGS (3)
  1. SERETIDE [Suspect]
     Indication: CHRONIC OBSTRUCTIVE PULMONARY DISEASE
     Route: 055
     Dates: start: 20040101
  2. SPIRIVA [Concomitant]
     Dates: start: 20070501
  3. CITALOPRAM HYDROBROMIDE [Concomitant]
     Dates: start: 20061201

REACTIONS (2)
  - DRUG INEFFECTIVE [None]
  - TOTAL LUNG CAPACITY DECREASED [None]
